FAERS Safety Report 14030810 (Version 1)
Quarter: 2017Q4

REPORT INFORMATION
  Report Type: Spontaneous
  Country: MA (occurrence: MA)
  Receive Date: 20171002
  Receipt Date: 20171002
  Transmission Date: 20180321
  Serious: Yes (Hospitalization)
  Sender: FDA-Public Use
  Company Number: MA-ROCHE-1996410

PATIENT
  Age: 80 Year
  Sex: Female

DRUGS (4)
  1. PERJETA [Suspect]
     Active Substance: PERTUZUMAB
     Indication: BREAST CANCER
     Route: 042
  2. PACLITAXEL. [Suspect]
     Active Substance: PACLITAXEL
     Indication: BREAST CANCER
     Route: 065
  3. HERTRAZ [Suspect]
     Active Substance: TRASTUZUMAB
     Indication: BREAST CANCER
     Route: 042
  4. DOCETAXEL. [Concomitant]
     Active Substance: DOCETAXEL

REACTIONS (2)
  - Pyrexia [Unknown]
  - Chills [Unknown]
